FAERS Safety Report 15474067 (Version 1)
Quarter: 2018Q4

REPORT INFORMATION
  Report Type: Report from Study
  Country: FR (occurrence: FR)
  Receive Date: 20181008
  Receipt Date: 20181008
  Transmission Date: 20190205
  Serious: Yes (Other)
  Sender: FDA-Public Use
  Company Number: FR-MYLANLABS-2018M1072767

PATIENT

DRUGS (1)
  1. OCTREOTIDE. [Suspect]
     Active Substance: OCTREOTIDE
     Indication: DIARRHOEA
     Route: 058

REACTIONS (3)
  - Staphylococcal infection [Unknown]
  - Injection site infection [Unknown]
  - Endocarditis staphylococcal [Unknown]
